FAERS Safety Report 9770460 (Version 2)
Quarter: 2014Q1

REPORT INFORMATION
  Report Type: Spontaneous
  Country: US (occurrence: US)
  Receive Date: 20131218
  Receipt Date: 20140128
  Transmission Date: 20141002
  Serious: No
  Sender: FDA-Public Use
  Company Number: US-BIOGENIDEC-2013BI112529

PATIENT
  Age: 51 Year
  Sex: Female

DRUGS (12)
  1. TECFIDERA [Suspect]
     Indication: MULTIPLE SCLEROSIS
     Route: 048
     Dates: end: 20131114
  2. GABAPENTIN [Concomitant]
  3. HYDROCODONE [Concomitant]
  4. METOPROLOL ER [Concomitant]
  5. ASA [Concomitant]
  6. BENAZAPRIL [Concomitant]
  7. BUPOPRION HCL SR [Concomitant]
  8. DIAZEPAM [Concomitant]
  9. SERTRALINE [Concomitant]
  10. SIMVASTATIN [Concomitant]
  11. SLONIACIN [Concomitant]
  12. SPIRONOLACTON [Concomitant]

REACTIONS (2)
  - Eczema [Not Recovered/Not Resolved]
  - Dermatitis allergic [Recovered/Resolved]
